FAERS Safety Report 14235841 (Version 4)
Quarter: 2019Q2

REPORT INFORMATION
  Report Type: Spontaneous
  Country: US (occurrence: US)
  Receive Date: 20171129
  Receipt Date: 20190403
  Transmission Date: 20190711
  Serious: Yes (Other)
  Sender: FDA-Public Use
  Company Number: US-ASTRAZENECA-2017SF18948

PATIENT
  Age: 25505 Day
  Sex: Male

DRUGS (26)
  1. NEXIUM [Suspect]
     Active Substance: ESOMEPRAZOLE MAGNESIUM
     Indication: HERNIA
     Route: 048
     Dates: start: 2012, end: 2013
  2. NEXIUM [Suspect]
     Active Substance: ESOMEPRAZOLE MAGNESIUM
     Indication: ABDOMINAL DISCOMFORT
     Route: 048
     Dates: start: 2012, end: 2013
  3. METFORMIN [Concomitant]
     Active Substance: METFORMIN HYDROCHLORIDE
     Route: 065
  4. POTASSIUM [Concomitant]
     Active Substance: POTASSIUM
     Indication: DIABETES MELLITUS
     Dosage: 10 MG
  5. NEXIUM [Suspect]
     Active Substance: ESOMEPRAZOLE MAGNESIUM
     Indication: HERNIA
     Route: 048
     Dates: start: 20150915
  6. OXYCONTIN [Concomitant]
     Active Substance: OXYCODONE HYDROCHLORIDE
     Route: 065
  7. VITAMIN B12 [Concomitant]
     Active Substance: CYANOCOBALAMIN
     Route: 065
  8. NEXIUM [Suspect]
     Active Substance: ESOMEPRAZOLE MAGNESIUM
     Indication: DYSPEPSIA
     Route: 048
     Dates: start: 20150915
  9. TRADJENTA [Concomitant]
     Active Substance: LINAGLIPTIN
     Indication: DIABETES MELLITUS
     Route: 065
     Dates: start: 20150915
  10. HYDROCHLOROTHIAZIDE. [Concomitant]
     Active Substance: HYDROCHLOROTHIAZIDE
     Indication: DIABETES MELLITUS
     Route: 065
  11. PRILOSEC OTC [Suspect]
     Active Substance: OMEPRAZOLE MAGNESIUM
     Indication: HERNIA
     Dosage: 3 MONTHS
     Route: 048
  12. PRILOSEC OTC [Suspect]
     Active Substance: OMEPRAZOLE MAGNESIUM
     Indication: DYSPEPSIA
     Dosage: 3 MONTHS
     Route: 048
  13. METOPROLOL TARTRATE. [Concomitant]
     Active Substance: METOPROLOL TARTRATE
     Indication: CARDIOVASCULAR EVENT PROPHYLAXIS
     Route: 065
     Dates: start: 20150915
  14. GLIPIZIDE. [Concomitant]
     Active Substance: GLIPIZIDE
     Indication: DIABETES MELLITUS
     Route: 065
  15. FUROSEMIDE. [Concomitant]
     Active Substance: FUROSEMIDE
     Indication: CARDIOVASCULAR EVENT PROPHYLAXIS
     Dosage: 40 MG
  16. NEXIUM [Suspect]
     Active Substance: ESOMEPRAZOLE MAGNESIUM
     Indication: DYSPEPSIA
     Route: 048
     Dates: start: 2012, end: 2013
  17. ASPIRIN. [Concomitant]
     Active Substance: ASPIRIN
     Indication: CARDIOVASCULAR EVENT PROPHYLAXIS
     Route: 065
     Dates: start: 20150915
  18. NORCO [Concomitant]
     Active Substance: ACETAMINOPHEN\HYDROCODONE BITARTRATE
     Dosage: 5-325 MG 1-2 TABLETS EVERY 6 HOURS.
     Route: 048
     Dates: start: 20150915
  19. POTASSIUM [Concomitant]
     Active Substance: POTASSIUM
     Route: 065
  20. HYDROCODONE [Concomitant]
     Active Substance: HYDROCODONE
     Indication: BACK PAIN
     Route: 065
  21. ATORVASTATIN CALCIUM. [Concomitant]
     Active Substance: ATORVASTATIN CALCIUM
     Indication: CARDIOVASCULAR EVENT PROPHYLAXIS
     Route: 065
     Dates: start: 20150915
  22. LOSARTAN. [Concomitant]
     Active Substance: LOSARTAN
     Route: 065
  23. NEXIUM [Suspect]
     Active Substance: ESOMEPRAZOLE MAGNESIUM
     Indication: ABDOMINAL DISCOMFORT
     Route: 048
     Dates: start: 20150915
  24. PRILOSEC OTC [Suspect]
     Active Substance: OMEPRAZOLE MAGNESIUM
     Indication: ABDOMINAL DISCOMFORT
     Dosage: 3 MONTHS
     Route: 048
  25. GLIPIZIDE. [Concomitant]
     Active Substance: GLIPIZIDE
     Indication: DIABETES MELLITUS
     Route: 065
     Dates: start: 20150915
  26. OXYCODONE [Concomitant]
     Active Substance: OXYCODONE
     Route: 065
     Dates: start: 20130925

REACTIONS (8)
  - Diabetic nephropathy [Unknown]
  - Chronic kidney disease [Unknown]
  - Diabetes mellitus [Not Recovered/Not Resolved]
  - Emotional distress [Unknown]
  - Renal failure [Not Recovered/Not Resolved]
  - Frustration tolerance decreased [Unknown]
  - Type 2 diabetes mellitus [Unknown]
  - Diabetic neuropathy [Unknown]

NARRATIVE: CASE EVENT DATE: 20130403
